FAERS Safety Report 18397169 (Version 1)
Quarter: 2020Q4

REPORT INFORMATION
  Report Type: Spontaneous
  Country: DE (occurrence: DE)
  Receive Date: 20201019
  Receipt Date: 20201019
  Transmission Date: 20210114
  Serious: Yes (Hospitalization)
  Sender: FDA-Public Use
  Company Number: DE-ORION CORPORATION ORION PHARMA-ENTC2020-0290

PATIENT
  Age: 82 Year
  Sex: Female

DRUGS (5)
  1. ISICOM [Suspect]
     Active Substance: CARBIDOPA\LEVODOPA
     Indication: PRODUCT USED FOR UNKNOWN INDICATION
     Route: 065
  2. SEROQUEL [Concomitant]
     Active Substance: QUETIAPINE FUMARATE
     Route: 065
  3. ONGENTYS [Concomitant]
     Active Substance: OPICAPONE
     Route: 065
  4. MADOPAR LT [Suspect]
     Active Substance: BENSERAZIDE HYDROCHLORIDE\LEVODOPA
     Indication: PARKINSON^S DISEASE
     Dosage: (1/2 TABLET IN MORNING, 3/4 TABLET AT 8:00 AM, 11:00 AM, 4:00 PM, 6:00 PM)
     Route: 065
  5. STALEVO [Suspect]
     Active Substance: CARBIDOPA\ENTACAPONE\LEVODOPA
     Indication: PRODUCT USED FOR UNKNOWN INDICATION
     Route: 065

REACTIONS (6)
  - Insomnia [Recovered/Resolved]
  - On and off phenomenon [Not Recovered/Not Resolved]
  - Panic reaction [Not Recovered/Not Resolved]
  - Therapeutic product effect decreased [Not Recovered/Not Resolved]
  - Confusional state [Not Recovered/Not Resolved]
  - Aggression [Recovered/Resolved]

NARRATIVE: CASE EVENT DATE: 2020
